FAERS Safety Report 9334732 (Version 1)
Quarter: 2013Q2

REPORT INFORMATION
  Report Type: Spontaneous
  Country: NL (occurrence: NL)
  Receive Date: 20130606
  Receipt Date: 20130606
  Transmission Date: 20140414
  Serious: Yes (Death, Other)
  Sender: FDA-Public Use
  Company Number: NL-009507513-1306NLD001696

PATIENT
  Age: 44 Year
  Sex: Female

DRUGS (5)
  1. MARVELON [Suspect]
     Indication: CONTRACEPTION
     Dosage: 1 DF, QD
     Dates: start: 20130102
  2. DIAZEPAM [Concomitant]
     Dosage: 3 TIMES PER 1, PRN
  3. PRIADEL [Concomitant]
     Dosage: 800 MG, QD
  4. VENLAFAXINE HYDROCHLORIDE [Concomitant]
     Dosage: 150 MG, BID
  5. ZYPREXA [Concomitant]
     Dosage: 10 MG, BID

REACTIONS (1)
  - Pulmonary embolism [Fatal]
